FAERS Safety Report 9415297 (Version 1)
Quarter: 2013Q3

REPORT INFORMATION
  Report Type: Spontaneous
  Country: CA (occurrence: CA)
  Receive Date: 20130723
  Receipt Date: 20130723
  Transmission Date: 20140515
  Serious: Yes (Death)
  Sender: FDA-Public Use
  Company Number: CA-ASTRAZENECA-2013SE54726

PATIENT
  Age: 9 Year
  Sex: Male
  Weight: 20 kg

DRUGS (18)
  1. DIPRIVAN [Suspect]
     Route: 042
  2. ANTIEPILEPTICS [Concomitant]
     Indication: EPILEPSY
  3. BANZEL [Concomitant]
  4. CARNITOR [Concomitant]
  5. CLONAZEPAM [Concomitant]
  6. COENZYME Q10 [Concomitant]
  7. DOPAMINE HCL [Concomitant]
     Route: 042
  8. EPINEPHRINE [Concomitant]
  9. LAMOTRIGINE [Concomitant]
  10. LEVETIRACETAM [Concomitant]
  11. MELATONIN [Concomitant]
  12. MIDAZOLAM INJECTION [Concomitant]
     Route: 030
  13. POTASSIUM CHLORIDE [Concomitant]
     Route: 042
  14. TRAZODONE [Concomitant]
  15. VALPROIC ACID [Concomitant]
  16. VITAMIN C [Concomitant]
  17. VITAMIN D [Concomitant]
  18. VITAMIN E [Concomitant]

REACTIONS (2)
  - Cardiac arrest [Fatal]
  - Ventricular tachycardia [Fatal]
